FAERS Safety Report 24451938 (Version 1)
Quarter: 2024Q4

REPORT INFORMATION
  Report Type: Spontaneous
  Country: US (occurrence: US)
  Receive Date: 20241017
  Receipt Date: 20241017
  Transmission Date: 20250115
  Serious: No
  Sender: GALDERMA
  Company Number: US-GALDERMA-US2024013104

PATIENT

DRUGS (1)
  1. DIFFERIN GEL [Suspect]
     Active Substance: ADAPALENE
     Indication: Product used for unknown indication
     Dosage: 1 DOSAGE FORM, 15 GRAM
     Route: 061
     Dates: start: 2024, end: 2024

REACTIONS (9)
  - Skin discomfort [Unknown]
  - Skin swelling [Unknown]
  - Skin burning sensation [Unknown]
  - Skin exfoliation [Unknown]
  - Skin texture abnormal [Unknown]
  - Eye swelling [Unknown]
  - Dry skin [Unknown]
  - Hypersensitivity [Unknown]
  - Expired product administered [Recovered/Resolved]

NARRATIVE: CASE EVENT DATE: 20240101
